FAERS Safety Report 6765168-0 (Version None)
Quarter: 2010Q2

REPORT INFORMATION
  Report Type: 
  Country: None (occurrence: None)
  Receive Date: 20100610
  Receipt Date: 20100610
  Transmission Date: 20101027
  Serious: Yes (Life-Threatening, Hospitalization, Other)
  Sender: FDA-Public Use
  Company Number: None

PATIENT
  Sex: Male
  Weight: 113.3993 kg

DRUGS (1)
  1. DOXAZOSIN MESYLATE [Suspect]
     Dosage: 1 MG BEDTIME 2 WKS STOPPED 2  2 MG TABS ; 2 MG BEDTIME 2 WKS ; 2 AM. ALL MONTH

REACTIONS (6)
  - AUTOIMMUNE DISORDER [None]
  - BLOOD PRESSURE ABNORMAL [None]
  - CARDIAC VALVE DISEASE [None]
  - DRUG HYPERSENSITIVITY [None]
  - GASTRIC ULCER [None]
  - INFECTION [None]
